FAERS Safety Report 7968175-5 (Version None)
Quarter: 2011Q4

REPORT INFORMATION
  Report Type: 
  Country: None (occurrence: None)
  Receive Date: 20111209
  Receipt Date: 20111205
  Transmission Date: 20120403
  Serious: Yes (Other)
  Sender: FDA-Public Use
  Company Number: ES-BRISTOL-MYERS SQUIBB COMPANY-16160541

PATIENT
  Age: 65 Year
  Sex: Male

DRUGS (1)
  1. SPRYCEL [Suspect]
     Indication: CHRONIC MYELOID LEUKAEMIA
     Dosage: INTERRUPTED AND RESTARTED ON 1DEC11 AT 50MG/D
     Route: 048
     Dates: start: 20110201

REACTIONS (3)
  - PULMONARY FUNCTION TEST DECREASED [None]
  - WEIGHT DECREASED [None]
  - RESPIRATORY FAILURE [None]
